FAERS Safety Report 5227658-1 (Version None)
Quarter: 2007Q1

REPORT INFORMATION
  Report Type: 
  Country: None (occurrence: None)
  Receive Date: 20070202
  Receipt Date: 20070124
  Transmission Date: 20070707
  Serious: Yes (Other)
  Sender: FDA-Public Use
  Company Number: AT-ABBOTT-07P-009-0354702-00

PATIENT
  Sex: Male
  Weight: 56 kg

DRUGS (12)
  1. KLACID [Suspect]
     Indication: BRONCHITIS
     Dosage: 1/0/1
     Route: 048
     Dates: start: 20061206, end: 20061209
  2. AZILECT TABLETS [Interacting]
     Indication: PARKINSON'S DISEASE
     Dosage: 1-0-0
     Route: 048
     Dates: start: 20060501
  3. NULYTELY [Concomitant]
     Indication: DRUG USE FOR UNKNOWN INDICATION
     Dosage: 1-0-1
  4. PRAMIPEXOLE DIHYDROCHLORIDE [Concomitant]
     Indication: DRUG USE FOR UNKNOWN INDICATION
     Dosage: 1-1-1
  5. FUROSEMIDE [Concomitant]
     Indication: DRUG USE FOR UNKNOWN INDICATION
     Dosage: 1/2-0-0 EVERY OTHER DAY
  6. THEOSPUREX RETARD [Concomitant]
     Indication: DRUG USE FOR UNKNOWN INDICATION
     Dosage: 1-0-1
  7. MADOPAR [Concomitant]
     Indication: DRUG USE FOR UNKNOWN INDICATION
     Dosage: 200 MG/50 MG 1/2-1/2-1/2-1/2-1/2
  8. BUDESONIDE [Concomitant]
     Indication: DRUG USE FOR UNKNOWN INDICATION
     Dosage: 2-0-2
  9. MONOKET RETARD [Concomitant]
     Indication: DRUG USE FOR UNKNOWN INDICATION
     Dosage: 1-0-1
  10. FINASTERIDE [Concomitant]
     Indication: DRUG USE FOR UNKNOWN INDICATION
     Dosage: 0-0-1
  11. ASPIRIN [Concomitant]
     Indication: DRUG USE FOR UNKNOWN INDICATION
     Dosage: 0-1-0
  12. SALMETEROL XINAFOATE [Concomitant]
     Indication: DRUG USE FOR UNKNOWN INDICATION
     Dosage: 2-0-2

REACTIONS (2)
  - DRUG INTERACTION [None]
  - DYSKINESIA [None]
